FAERS Safety Report 23709820 (Version 2)
Quarter: 2024Q2

REPORT INFORMATION
  Report Type: Report from Study
  Country: CA (occurrence: CA)
  Receive Date: 20240405
  Receipt Date: 20240419
  Transmission Date: 20240716
  Serious: Yes (Hospitalization, Other)
  Sender: FDA-Public Use
  Company Number: CA-JNJFOC-20230837304

PATIENT
  Age: 27 Year
  Sex: Female
  Weight: 69 kg

DRUGS (6)
  1. REMICADE [Suspect]
     Active Substance: INFLIXIMAB
     Indication: Colitis ulcerative
     Route: 041
     Dates: start: 20211013
  2. REMICADE [Suspect]
     Active Substance: INFLIXIMAB
     Route: 041
     Dates: start: 20220202
  3. REMICADE [Suspect]
     Active Substance: INFLIXIMAB
     Dosage: 17TH INFUSION
     Route: 041
     Dates: start: 20231130
  4. REMICADE [Suspect]
     Active Substance: INFLIXIMAB
     Dosage: 19TH INFUSION
     Route: 041
     Dates: start: 20240219
  5. REMICADE [Suspect]
     Active Substance: INFLIXIMAB
     Route: 041
     Dates: start: 20220202
  6. MIRVALA 21 [Concomitant]

REACTIONS (13)
  - Ovarian cyst [Recovering/Resolving]
  - Ovarian cyst [Unknown]
  - Ovarian cyst ruptured [Not Recovered/Not Resolved]
  - Gait inability [Unknown]
  - Device dislocation [Unknown]
  - Adenomyosis [Recovering/Resolving]
  - General physical health deterioration [Unknown]
  - Arthralgia [Not Recovered/Not Resolved]
  - Urinary tract infection [Recovering/Resolving]
  - Migraine [Unknown]
  - Vomiting [Unknown]
  - Nausea [Unknown]
  - COVID-19 [Recovered/Resolved]

NARRATIVE: CASE EVENT DATE: 20230801
